FAERS Safety Report 4267821-X (Version None)
Quarter: 2004Q1

REPORT INFORMATION
  Report Type: 
  Country: None (occurrence: None)
  Receive Date: 20040109
  Receipt Date: 20040106
  Transmission Date: 20041129
  Serious: Yes (Hospitalization)
  Sender: FDA-Public Use
  Company Number: US-GLAXOSMITHKLINE-A0491695A

PATIENT
  Age: 14 Year
  Sex: Female

DRUGS (3)
  1. LAMICTAL [Suspect]
     Dosage: 300MG PER DAY
     Route: 048
     Dates: start: 20030601
  2. PAXIL [Concomitant]
  3. BOTOX [Concomitant]

REACTIONS (3)
  - BLEPHAROSPASM [None]
  - EYE SWELLING [None]
  - RETINAL DETACHMENT [None]
